FAERS Safety Report 10234796 (Version 1)
Quarter: 2014Q1

REPORT INFORMATION
  Report Type: Spontaneous
  Country: US (occurrence: None)
  Receive Date: 20140306
  Receipt Date: 20140306
  Transmission Date: 20141002
  Serious: Yes (Other)
  Sender: FDA-Public Use
  Company Number: 163-21880-13045021

PATIENT
  Age: 73 Year
  Sex: Male

DRUGS (6)
  1. REVLIMID [Suspect]
     Indication: PLASMA CELL MYELOMA
     Dosage: 21 IN 28 D
     Route: 048
     Dates: start: 20130405, end: 20130426
  2. IRON (IRON) [Concomitant]
  3. SIMVASTATIN (SIMVASTATIN) [Concomitant]
  4. TRIMATERENE HCTZ (DYAZIDE) [Concomitant]
  5. DEXAMETHASONE (DEXAMETHASONE) [Concomitant]
  6. LISINOPRIL (LISINOPRIL) [Concomitant]

REACTIONS (4)
  - Anaemia [None]
  - Depression [None]
  - Fatigue [None]
  - Red blood cell count abnormal [None]
